FAERS Safety Report 18049713 (Version 2)
Quarter: 2020Q3

REPORT INFORMATION
  Report Type: Spontaneous
  Country: US (occurrence: US)
  Receive Date: 20200721
  Receipt Date: 20200728
  Transmission Date: 20201103
  Serious: Yes (Other)
  Sender: FDA-Public Use
  Company Number: US-PFIZER INC-2020264822

PATIENT
  Age: 4 Week
  Sex: Male
  Weight: 3.32 kg

DRUGS (2)
  1. MORPHINE SULFATE. [Suspect]
     Active Substance: MORPHINE SULFATE
     Indication: SEDATIVE THERAPY
     Dosage: 4 MG
     Route: 030
  2. SECOBARBITAL [Concomitant]
     Active Substance: SECOBARBITAL
     Indication: SEDATIVE THERAPY
     Dosage: 15 MG
     Route: 030

REACTIONS (3)
  - Wrong product administered [Unknown]
  - Overdose [Recovered/Resolved]
  - Infantile apnoea [Recovered/Resolved]
